FAERS Safety Report 12594881 (Version 1)
Quarter: 2016Q3

REPORT INFORMATION
  Report Type: Spontaneous
  Country: US (occurrence: US)
  Receive Date: 20160726
  Receipt Date: 20160726
  Transmission Date: 20161109
  Serious: Yes (Other)
  Sender: FDA-Public Use
  Company Number: US-PFIZER INC-2016352289

PATIENT
  Sex: Male

DRUGS (3)
  1. REVATIO [Suspect]
     Active Substance: SILDENAFIL CITRATE
     Indication: ERECTILE DYSFUNCTION
     Dosage: UNK
     Dates: start: 201310, end: 2015
  2. VIAGRA [Suspect]
     Active Substance: SILDENAFIL CITRATE
     Indication: ERECTILE DYSFUNCTION
     Dosage: UNK, REGULARLY
     Route: 048
     Dates: end: 200905
  3. VIAGRA [Suspect]
     Active Substance: SILDENAFIL CITRATE
     Dosage: UNK, REGULARLY
     Route: 048
     Dates: start: 201002, end: 201310

REACTIONS (9)
  - Metastases to lung [Unknown]
  - Metastases to liver [Unknown]
  - Pulmonary mass [Unknown]
  - Dyspnoea [Unknown]
  - Metastatic malignant melanoma [Unknown]
  - Desmoplastic melanoma [Unknown]
  - Peripheral nerve sheath tumour malignant [Unknown]
  - Metastases to lymph nodes [Unknown]
  - Pleural effusion [Unknown]

NARRATIVE: CASE EVENT DATE: 201407
